FAERS Safety Report 7211788-9 (Version None)
Quarter: 2011Q1

REPORT INFORMATION
  Report Type: 
  Country: None (occurrence: None)
  Receive Date: 20110105
  Receipt Date: 20101223
  Transmission Date: 20110831
  Serious: Yes (Life-Threatening, Hospitalization)
  Sender: FDA-Public Use
  Company Number: ES-AMGEN-ESPCT2010003655

PATIENT
  Sex: Female
  Weight: 68 kg

DRUGS (15)
  1. PANITUMUMAB [Suspect]
     Indication: COLORECTAL CANCER
     Dosage: 408 MG, Q2WK
     Dates: start: 20100928, end: 20101026
  2. TRAMADOL HCL [Concomitant]
     Route: 048
     Dates: start: 20100909, end: 20101006
  3. HIDROCORTISONE [Concomitant]
     Route: 061
     Dates: start: 20100927, end: 20101108
  4. GRANISETRON HCL [Concomitant]
     Route: 042
     Dates: start: 20100928
  5. MICARDIS [Concomitant]
     Indication: HYPERTENSION
     Route: 048
     Dates: start: 20101020, end: 20101020
  6. OXALIPLATIN [Suspect]
     Indication: COLORECTAL CANCER
     Dosage: 107 MG, Q2WK
     Route: 042
     Dates: start: 20100928
  7. FLUOROURACIL [Suspect]
     Indication: COLORECTAL CANCER
     Dosage: UNK UNK, Q2WK
     Route: 042
     Dates: start: 20100928
  8. DEXAMETASONE [Concomitant]
     Route: 042
     Dates: start: 20100928
  9. MFOLFOX6 [Suspect]
     Dosage: ADVERSE EVENT
     Dates: start: 20100928, end: 20101026
  10. DOXICICLINA [Concomitant]
     Route: 048
     Dates: start: 20100927, end: 20101108
  11. TRAMADOL HCL [Concomitant]
     Indication: ABDOMINAL PAIN
     Dosage: 50 MG, Q8H
     Route: 048
     Dates: start: 20101007
  12. RANITIDINE [Concomitant]
     Indication: DEHYDRATION
     Route: 042
     Dates: start: 20101109, end: 20101109
  13. LEUCOVORIN                         /00566701/ [Suspect]
     Indication: COLORECTAL CANCER
     Dosage: 660 MG, Q2WK
     Route: 042
     Dates: start: 20100928
  14. POTASSIUM [Concomitant]
     Indication: DEHYDRATION
     Route: 042
     Dates: start: 20101109, end: 20101109
  15. FORTASEC [Concomitant]
     Indication: DIARRHOEA
     Route: 048
     Dates: start: 20101019, end: 20101022

REACTIONS (1)
  - DEHYDRATION [None]
